FAERS Safety Report 25082110 (Version 1)
Quarter: 2025Q1

REPORT INFORMATION
  Report Type: Spontaneous
  Country: US (occurrence: US)
  Receive Date: 20250317
  Receipt Date: 20250317
  Transmission Date: 20250409
  Serious: Yes (Other)
  Sender: JOHNSON AND JOHNSON
  Company Number: US-JNJFOC-20250325048

PATIENT
  Age: 78 Year

DRUGS (2)
  1. XARELTO [Suspect]
     Active Substance: RIVAROXABAN
     Indication: Deep vein thrombosis
     Route: 048
     Dates: start: 20231013
  2. XARELTO [Suspect]
     Active Substance: RIVAROXABAN
     Indication: Pulmonary embolism
     Route: 048

REACTIONS (4)
  - Rectal haemorrhage [Unknown]
  - Abdominal pain upper [Unknown]
  - Abdominal distension [Unknown]
  - Product physical issue [Unknown]

NARRATIVE: CASE EVENT DATE: 20250301
